FAERS Safety Report 7828470-7 (Version None)
Quarter: 2011Q4

REPORT INFORMATION
  Report Type: 
  Country: None (occurrence: None)
  Receive Date: 20111020
  Receipt Date: 20111007
  Transmission Date: 20120403
  Serious: Yes (Life-Threatening, Hospitalization)
  Sender: FDA-Public Use
  Company Number: JP-MERCK-0709USA02132

PATIENT
  Age: 82 Year
  Sex: Female
  Weight: 40 kg

DRUGS (12)
  1. QVAR 40 [Concomitant]
     Indication: CHRONIC RESPIRATORY FAILURE
     Route: 065
     Dates: start: 20060601
  2. MUCODYNE [Concomitant]
     Indication: CHRONIC RESPIRATORY FAILURE
     Route: 048
     Dates: start: 20060601, end: 20070910
  3. SPIRIVA [Concomitant]
     Indication: CHRONIC RESPIRATORY FAILURE
     Route: 055
     Dates: start: 20060601, end: 20070910
  4. ASPIRIN [Concomitant]
     Indication: ANGINA PECTORIS
     Route: 048
     Dates: start: 20070903, end: 20070910
  5. MUCOSOLVAN [Concomitant]
     Indication: BRONCHITIS
     Route: 048
     Dates: start: 20060601, end: 20070910
  6. MUCODYNE [Concomitant]
     Indication: BRONCHITIS
     Route: 048
     Dates: start: 20060601, end: 20070910
  7. SEREVENT [Concomitant]
     Indication: CHRONIC RESPIRATORY FAILURE
     Route: 065
     Dates: start: 20060601, end: 20070910
  8. CARVEDILOL [Concomitant]
     Indication: ANGINA PECTORIS
     Route: 048
     Dates: start: 20070904, end: 20070910
  9. METHYCOBAL [Concomitant]
     Route: 048
     Dates: start: 20060601, end: 20070910
  10. FAMOTIDINE [Concomitant]
     Route: 048
     Dates: start: 20060601, end: 20070910
  11. HYZAAR [Suspect]
     Indication: HYPERTENSION
     Route: 048
     Dates: start: 20070201
  12. SIGMART [Concomitant]
     Indication: ANGINA PECTORIS
     Route: 065
     Dates: start: 20070903, end: 20070910

REACTIONS (4)
  - ANGINA PECTORIS [None]
  - ALTERED STATE OF CONSCIOUSNESS [None]
  - CONVULSION [None]
  - HYPONATRAEMIA [None]
